FAERS Safety Report 17605821 (Version 2)
Quarter: 2021Q1

REPORT INFORMATION
  Report Type: Report from Study
  Country: GB (occurrence: GB)
  Receive Date: 20200331
  Receipt Date: 20210202
  Transmission Date: 20210419
  Serious: Yes (Hospitalization)
  Sender: FDA-Public Use
  Company Number: GB-JNJFOC-20200331698

PATIENT
  Sex: Male
  Weight: 97 kg

DRUGS (7)
  1. SERTRALINE [Concomitant]
     Active Substance: SERTRALINE HYDROCHLORIDE
     Dates: start: 20150104
  2. THIAMINE HYDROCHLORIDE. [Concomitant]
     Active Substance: THIAMINE HYDROCHLORIDE
     Dates: start: 20150904
  3. QUETIAPINE. [Concomitant]
     Active Substance: QUETIAPINE
     Dates: start: 20160904
  4. CITALOPRAM [Concomitant]
     Active Substance: CITALOPRAM HYDROBROMIDE
  5. VITAMIN B COMPLEX                  /00003501/ [Concomitant]
     Active Substance: CALCIUM PANTOTHENATE\NIACINAMIDE\PYRIDOXINE HYDROCHLORIDE\RIBOFLAVIN\THIAMINE HYDROCHLORIDE
     Dates: start: 20150904
  6. STELARA [Suspect]
     Active Substance: USTEKINUMAB
     Indication: PSORIASIS
     Route: 058
     Dates: start: 20150127
  7. METHYLPREDNISOLONE. [Concomitant]
     Active Substance: METHYLPREDNISOLONE
     Dates: start: 20200103, end: 20200107

REACTIONS (1)
  - Multiple sclerosis [Recovered/Resolved with Sequelae]

NARRATIVE: CASE EVENT DATE: 20200102
